FAERS Safety Report 4907144-6 (Version None)
Quarter: 2006Q1

REPORT INFORMATION
  Report Type: 
  Country: None (occurrence: None)
  Receive Date: 20060206
  Receipt Date: 20060124
  Transmission Date: 20060701
  Serious: Yes (Other)
  Sender: FDA-Public Use
  Company Number: 2006012939

PATIENT
  Age: 39 Year
  Sex: Male

DRUGS (2)
  1. EPELIN SUSPENSION (PHENYTOIN SODIUM) [Suspect]
     Indication: PETIT MAL EPILEPSY
     Dosage: ORAL
     Route: 048
     Dates: start: 20050101
  2. GARDENALE (PHENOBARBITAL SODIUM) [Concomitant]

REACTIONS (2)
  - PETIT MAL EPILEPSY [None]
  - UNEVALUABLE EVENT [None]
